FAERS Safety Report 18180096 (Version 1)
Quarter: 2020Q3

REPORT INFORMATION
  Report Type: Spontaneous
  Country: BE (occurrence: BE)
  Receive Date: 20200821
  Receipt Date: 20200821
  Transmission Date: 20201103
  Serious: Yes (Disabling, Other)
  Sender: FDA-Public Use
  Company Number: BE-LUPIN PHARMACEUTICALS INC.-2020-04911

PATIENT
  Age: 35 Year
  Sex: Male

DRUGS (10)
  1. POLYHEXAMETHYLENE BIGUANIDE HYDROCHLORIDE [Concomitant]
     Active Substance: POLIHEXANIDE HYDROCHLORIDE
     Indication: ACANTHAMOEBA KERATITIS
     Dosage: 0.02 PERCENT SIX TIMES A DAY
     Route: 065
  2. NEPAFENAC [Suspect]
     Active Substance: NEPAFENAC
     Indication: ACANTHAMOEBA KERATITIS
     Dosage: 0.1 PERCENT, QD
     Route: 061
  3. CHLORHEXIDINE [Concomitant]
     Active Substance: CHLORHEXIDINE
     Indication: ACANTHAMOEBA KERATITIS
     Dosage: 0.02 PERCENT SIX TIMES A DAY
     Route: 065
  4. METHYLPREDNISOLONE. [Suspect]
     Active Substance: METHYLPREDNISOLONE
     Dosage: UNK
     Route: 048
  5. AZATHIOPRINE. [Suspect]
     Active Substance: AZATHIOPRINE
     Indication: ACANTHAMOEBA KERATITIS
     Dosage: 150 MILLIGRAM
     Route: 065
  6. AMPHOTERICIN B. [Concomitant]
     Active Substance: AMPHOTERICIN B
     Indication: EYE INFECTION FUNGAL
     Dosage: 0.15 PERCENT, SIX TIMES A DAY
     Route: 065
  7. DESOMEDINE [Concomitant]
     Active Substance: HEXAMIDINE DIISETHIONATE
     Indication: ACANTHAMOEBA KERATITIS
     Dosage: 0.1 PERCENT, SIX TIMES A DAY
     Route: 065
  8. ITRACONAZOLE. [Concomitant]
     Active Substance: ITRACONAZOLE
     Indication: EYE INFECTION FUNGAL
     Dosage: 100 MILLIGRAM
     Route: 048
  9. IBUPROFEN. [Suspect]
     Active Substance: IBUPROFEN
     Indication: ACANTHAMOEBA KERATITIS
     Dosage: 600 MILLIGRAM, TID
     Route: 048
  10. METHYLPREDNISOLONE. [Suspect]
     Active Substance: METHYLPREDNISOLONE
     Indication: ACANTHAMOEBA KERATITIS
     Dosage: 1 GRAM
     Route: 042

REACTIONS (7)
  - Anaemia [Unknown]
  - Osteonecrosis [Unknown]
  - Drug ineffective [Unknown]
  - Muscle atrophy [Unknown]
  - Blood lactate dehydrogenase increased [Unknown]
  - Bronchopulmonary aspergillosis [Unknown]
  - Myopathy [Unknown]
